FAERS Safety Report 25454016 (Version 2)
Quarter: 2025Q2

REPORT INFORMATION
  Report Type: Spontaneous
  Country: US (occurrence: US)
  Receive Date: 20250619
  Receipt Date: 20250624
  Transmission Date: 20250717
  Serious: Yes (Other)
  Sender: AMGEN
  Company Number: US-AMGEN-USASP2025114819

PATIENT

DRUGS (1)
  1. BEVACIZUMAB [Suspect]
     Active Substance: BEVACIZUMAB
     Indication: Rhegmatogenous retinal detachment

REACTIONS (3)
  - Glaucoma [Unknown]
  - Rhegmatogenous retinal detachment [Unknown]
  - Off label use [Unknown]
